FAERS Safety Report 10652545 (Version 2)
Quarter: 2014Q4

REPORT INFORMATION
  Report Type: Report from Study
  Country: BE (occurrence: BE)
  Receive Date: 20141215
  Receipt Date: 20141215
  Transmission Date: 20150529
  Serious: Yes (Other)
  Sender: FDA-Public Use
  Company Number: BE-CELGENE-013-21660-14052567

PATIENT

DRUGS (2)
  1. GEMCITABINE [Suspect]
     Active Substance: GEMCITABINE\GEMCITABINE HYDROCHLORIDE
     Indication: ADENOCARCINOMA PANCREAS
     Route: 065
  2. ABRAXANE [Suspect]
     Active Substance: PACLITAXEL
     Indication: ADENOCARCINOMA PANCREAS
     Route: 041

REACTIONS (6)
  - Vomiting [Recovered/Resolved]
  - Dysaesthesia [Recovered/Resolved]
  - Dysgeusia [Not Recovered/Not Resolved]
  - Fatigue [Not Recovered/Not Resolved]
  - Capillary leak syndrome [Not Recovered/Not Resolved]
  - Oedema peripheral [Not Recovered/Not Resolved]
